FAERS Safety Report 12189124 (Version 1)
Quarter: 2016Q1

REPORT INFORMATION
  Report Type: Spontaneous
  Country: US (occurrence: US)
  Receive Date: 20160317
  Receipt Date: 20160317
  Transmission Date: 20160526
  Serious: No
  Sender: FDA-Public Use
  Company Number: US-BAXTER-2016BAX009968

PATIENT
  Sex: Female

DRUGS (3)
  1. 5% DEXTROSE AND 0.9% SODIUM CHLORIDE INJECTION [Suspect]
     Active Substance: DEXTROSE\SODIUM CHLORIDE
     Indication: NEPHROLITHIASIS
     Dosage: COUPLE OF BAGS OF 1000 ML
     Route: 065
  2. 5% DEXTROSE AND 0.9% SODIUM CHLORIDE INJECTION [Suspect]
     Active Substance: DEXTROSE\SODIUM CHLORIDE
     Indication: OFF LABEL USE
  3. 5% DEXTROSE AND 0.9% SODIUM CHLORIDE INJECTION [Suspect]
     Active Substance: DEXTROSE\SODIUM CHLORIDE
     Indication: IRRIGATION THERAPY

REACTIONS (1)
  - Fluid retention [Not Recovered/Not Resolved]
